FAERS Safety Report 14119763 (Version 1)
Quarter: 2017Q4

REPORT INFORMATION
  Report Type: Spontaneous
  Country: US (occurrence: None)
  Receive Date: 20171024
  Receipt Date: 20171024
  Transmission Date: 20180321
  Serious: No
  Sender: FDA-Public Use
  Company Number: None

PATIENT
  Age: 38 Year
  Sex: Male

DRUGS (1)
  1. TASIGNA [Suspect]
     Active Substance: NILOTINIB

REACTIONS (4)
  - Pancreatitis [None]
  - Abdominal distension [None]
  - Abdominal pain upper [None]
  - Food craving [None]

NARRATIVE: CASE EVENT DATE: 20171024
